FAERS Safety Report 16569470 (Version 1)
Quarter: 2019Q3

REPORT INFORMATION
  Report Type: Spontaneous
  Country: FR (occurrence: FR)
  Receive Date: 20190715
  Receipt Date: 20190715
  Transmission Date: 20191004
  Serious: Yes (Other)
  Sender: FDA-Public Use
  Company Number: FR-ASTRAZENECA-2019SE99177

PATIENT
  Age: 62 Year
  Sex: Male
  Weight: 82 kg

DRUGS (10)
  1. GAVISCON [Concomitant]
     Active Substance: ALUMINUM HYDROXIDE\MAGNESIUM CARBONATE
     Dosage: 1.0DF UNKNOWN
     Route: 048
  2. TEMESTA [Concomitant]
     Dosage: 1.0MG UNKNOWN
     Route: 048
  3. IRBESARTAN. [Concomitant]
     Active Substance: IRBESARTAN
     Dosage: 150.0MG UNKNOWN
     Route: 048
  4. CLAMOXYL (AMOXICILLIN) [Suspect]
     Active Substance: AMOXICILLIN
     Indication: HELICOBACTER INFECTION
     Route: 048
     Dates: start: 20190408, end: 20190409
  5. TAHOR [Concomitant]
     Active Substance: ATORVASTATIN CALCIUM
     Indication: HYPERCHOLESTEROLAEMIA
     Dosage: 20.0MG UNKNOWN
     Route: 048
  6. KARDEGIC [Suspect]
     Active Substance: ASPIRIN DL-LYSINE
     Indication: VERTEBRAL ARTERY STENOSIS
     Route: 048
     Dates: start: 20190408, end: 20190409
  7. FLAGYL [Suspect]
     Active Substance: METRONIDAZOLE\METRONIDAZOLE HYDROCHLORIDE
     Indication: HELICOBACTER INFECTION
     Route: 048
     Dates: start: 20190408, end: 20190409
  8. PLAVIX [Concomitant]
     Active Substance: CLOPIDOGREL BISULFATE
     Dosage: 75.0MG UNKNOWN
     Route: 048
  9. LARGACTIL [Concomitant]
     Active Substance: CHLORPROMAZINE
     Dosage: 37.5MG UNKNOWN
     Route: 048
  10. OMEPRAZOLE. [Suspect]
     Active Substance: OMEPRAZOLE
     Indication: HELICOBACTER INFECTION
     Route: 048
     Dates: start: 20190408, end: 20190409

REACTIONS (1)
  - Anaphylactoid shock [Recovered/Resolved]

NARRATIVE: CASE EVENT DATE: 20190409
